FAERS Safety Report 5931053-7 (Version None)
Quarter: 2008Q4

REPORT INFORMATION
  Report Type: 
  Country: None (occurrence: None)
  Receive Date: 20081022
  Receipt Date: 20081010
  Transmission Date: 20090506
  Serious: No
  Sender: FDA-Public Use
  Company Number: 2008-185203-NL

PATIENT
  Age: 54 Year
  Sex: Female

DRUGS (9)
  1. MIRTAZAPINE [Suspect]
     Indication: SOMATOFORM DISORDER
     Dosage: 15 MG ORAL
     Route: 048
     Dates: start: 20081006, end: 20081010
  2. MAGNESIUM SULFATE [Concomitant]
  3. ACETYLSALICYLIC ACID SRT [Concomitant]
  4. RAMIPRIL [Concomitant]
  5. CARBIDOPA + LEVODOPA [Concomitant]
  6. SIMVASTATIN [Concomitant]
  7. BUDESONIDE [Concomitant]
  8. COLECALCIFEROL [Concomitant]
  9. PREDNISONE TAB [Concomitant]

REACTIONS (1)
  - ELECTROCARDIOGRAM QT PROLONGED [None]
